FAERS Safety Report 8820859 (Version 4)
Quarter: 2013Q2

REPORT INFORMATION
  Report Type: Report from Study
  Country: FR (occurrence: FR)
  Receive Date: 20121002
  Receipt Date: 20130626
  Transmission Date: 20140414
  Serious: Yes (Disabling)
  Sender: FDA-Public Use
  Company Number: FR-ROCHE-1137724

PATIENT
  Age: 11 Year
  Sex: Male
  Weight: 28.7 kg

DRUGS (3)
  1. BEVACIZUMAB [Suspect]
     Indication: SARCOMA
     Dosage: LAST DOSE PRIOR TO SAE: 27/APR/2012. DOSES FORM:5 MG/KG
     Route: 042
     Dates: start: 20101103
  2. CYCLOPHOSPHAMIDE [Suspect]
     Indication: SARCOMA
     Dosage: LAST DOSE PRIOR TO SAE: 09/MAY/2012. DOSES FORM:25 MG/M2
     Route: 048
     Dates: start: 20110610
  3. VINORELBINE TARTRATE [Suspect]
     Indication: SARCOMA
     Dosage: LAST DOSE PRIOR TO SAE: 27/APR/2012. DOSES FORM:25 MG/M2
     Route: 042
     Dates: start: 20110610

REACTIONS (1)
  - Hearing impaired [Not Recovered/Not Resolved]
